FAERS Safety Report 26112611 (Version 1)
Quarter: 2025Q4

REPORT INFORMATION
  Report Type: Spontaneous
  Country: CA (occurrence: CA)
  Receive Date: 20251202
  Receipt Date: 20251202
  Transmission Date: 20260118
  Serious: Yes (Other)
  Sender: NOVO NORDISK
  Company Number: CA-NOVOPROD-1571625

PATIENT
  Age: 79 Year
  Sex: Female

DRUGS (1)
  1. VICTOZA [Suspect]
     Active Substance: LIRAGLUTIDE
     Indication: Bile acid malabsorption
     Dosage: 1.8 MG, QD
     Dates: start: 20251111, end: 20251112

REACTIONS (6)
  - Vomiting [Unknown]
  - Fatigue [Unknown]
  - Dehydration [Unknown]
  - Eructation [Unknown]
  - Nausea [Unknown]
  - Product use in unapproved indication [Recovered/Resolved]

NARRATIVE: CASE EVENT DATE: 20251111
